FAERS Safety Report 5518204-3 (Version None)
Quarter: 2007Q4

REPORT INFORMATION
  Report Type: 
  Country: None (occurrence: None)
  Receive Date: 20071115
  Receipt Date: 20071113
  Transmission Date: 20080405
  Serious: Yes (Death)
  Sender: FDA-Public Use
  Company Number: KR-ASTRAZENECA-2007AP07201

PATIENT
  Age: 755 Month
  Sex: Male

DRUGS (6)
  1. SYMBICORT [Suspect]
     Indication: BRONCHOSPASM
     Route: 055
     Dates: start: 20061101
  2. THEOPHYLLINE [Suspect]
     Indication: BRONCHOSPASM
     Route: 048
     Dates: start: 20060901
  3. DOMENAN [Suspect]
     Indication: BRONCHOSPASM
     Route: 048
     Dates: start: 20060901
  4. MUCORONE [Suspect]
     Indication: PRODUCTIVE COUGH
     Route: 048
     Dates: start: 20060901
  5. MUCORONE [Suspect]
     Indication: COUGH
     Route: 048
     Dates: start: 20060901
  6. SPIRIVA [Suspect]
     Route: 055
     Dates: start: 20060901

REACTIONS (1)
  - PNEUMOTHORAX [None]
